FAERS Safety Report 9595067 (Version 1)
Quarter: 2013Q4

REPORT INFORMATION
  Report Type: Spontaneous
  Country: IT (occurrence: IT)
  Receive Date: 20131004
  Receipt Date: 20131004
  Transmission Date: 20140711
  Serious: Yes (Other)
  Sender: FDA-Public Use
  Company Number: IT-JNJFOC-20130917168

PATIENT
  Age: 42 Year
  Sex: Female

DRUGS (5)
  1. INVEGA [Suspect]
     Indication: DELIRIUM
     Route: 048
     Dates: start: 20130521, end: 20130601
  2. HALDOL [Suspect]
     Indication: DELIRIUM
     Route: 048
     Dates: start: 20130512, end: 20130524
  3. ZYPREXA [Suspect]
     Indication: DELIRIUM
     Route: 048
     Dates: start: 20120417, end: 20130506
  4. DEPAKIN [Suspect]
     Indication: DELIRIUM
     Route: 048
     Dates: start: 20130512, end: 20130601
  5. TRITTICO [Concomitant]
     Indication: PRODUCT USED FOR UNKNOWN INDICATION
     Route: 048
     Dates: start: 20120901, end: 20130506

REACTIONS (1)
  - Blood prolactin increased [Recovered/Resolved]
